FAERS Safety Report 12242756 (Version 2)
Quarter: 2016Q2

REPORT INFORMATION
  Report Type: Report from Study
  Country: US (occurrence: US)
  Receive Date: 20160406
  Receipt Date: 20160512
  Transmission Date: 20160815
  Serious: Yes (Hospitalization)
  Sender: FDA-Public Use
  Company Number: US-BIOGEN-2015BI103282

PATIENT
  Age: 50 Year
  Sex: Female

DRUGS (1)
  1. PLEGRIDY [Suspect]
     Active Substance: PEGINTERFERON BETA-1A
     Indication: MULTIPLE SCLEROSIS
     Dosage: TAKEN NOT MORE THAN TWO DOSES
     Route: 065
     Dates: start: 201511, end: 201511

REACTIONS (1)
  - Abasia [Unknown]

NARRATIVE: CASE EVENT DATE: 201511
